FAERS Safety Report 6595239-3 (Version None)
Quarter: 2010Q1

REPORT INFORMATION
  Report Type: 
  Country: None (occurrence: None)
  Receive Date: 20100212
  Receipt Date: 20100128
  Transmission Date: 20100710
  Serious: Yes (Death)
  Sender: FDA-Public Use
  Company Number: DSA_42062_2009

PATIENT
  Age: 56 Year
  Sex: Male

DRUGS (1)
  1. XENAZINE [Suspect]
     Indication: HUNTINGTON'S CHOREA
     Dosage: 37.5 MG BID, (1.5 TABLETS OF 25 MG TWICE A DAILY) ORAL)
     Route: 048
     Dates: start: 20090707

REACTIONS (1)
  - PNEUMONIA [None]
